FAERS Safety Report 13933527 (Version 2)
Quarter: 2017Q3

REPORT INFORMATION
  Report Type: Spontaneous
  Country: AU (occurrence: AU)
  Receive Date: 20170904
  Receipt Date: 20170905
  Transmission Date: 20171127
  Serious: Yes (Other)
  Sender: FDA-Public Use
  Company Number: PHHY2017AU124739

PATIENT
  Age: 5 Year
  Sex: Male

DRUGS (3)
  1. CICLOSPORIN [Suspect]
     Active Substance: CYCLOSPORINE
     Dosage: UNK
     Route: 065
     Dates: end: 201411
  2. CICLOSPORIN [Suspect]
     Active Substance: CYCLOSPORINE
     Indication: NEPHROTIC SYNDROME
     Dosage: UNK
     Route: 065
     Dates: start: 2007, end: 201003
  3. PREDNISOLONE. [Concomitant]
     Active Substance: PREDNISOLONE
     Indication: PRODUCT USED FOR UNKNOWN INDICATION
     Dosage: UNK, ALTERNATE DAY
     Route: 065

REACTIONS (7)
  - Cataract [Unknown]
  - Nephrosclerosis [Unknown]
  - Nephrotic syndrome [Unknown]
  - Hirsutism [Unknown]
  - Gingival hypertrophy [Unknown]
  - Mesangioproliferative glomerulonephritis [Unknown]
  - Mental disorder [Unknown]

NARRATIVE: CASE EVENT DATE: 201003
